FAERS Safety Report 5505616-7 (Version None)
Quarter: 2007Q4

REPORT INFORMATION
  Report Type: 
  Country: None (occurrence: None)
  Receive Date: 20071102
  Receipt Date: 20071025
  Transmission Date: 20080405
  Serious: Yes (Disabling, Other)
  Sender: FDA-Public Use
  Company Number: DE-PFIZER INC-2007061202

PATIENT
  Sex: Male
  Weight: 85 kg

DRUGS (3)
  1. SORTIS [Suspect]
     Indication: HYPERCHOLESTEROLAEMIA
     Dosage: DAILY DOSE:60MG-FREQ:DAILY
     Route: 048
     Dates: start: 20000101, end: 20070101
  2. ALL OTHER THERAPEUTIC PRODUCTS [Concomitant]
  3. ACE INHIBITOR NOS [Concomitant]

REACTIONS (2)
  - TENDONITIS [None]
  - URINARY TRACT INFECTION [None]
